FAERS Safety Report 22541740 (Version 2)
Quarter: 2023Q2

REPORT INFORMATION
  Report Type: Report from Study
  Country: US (occurrence: US)
  Receive Date: 20230609
  Receipt Date: 20230613
  Transmission Date: 20230721
  Serious: No
  Sender: FDA-Public Use
  Company Number: US-PFIZER INC-PV202300101641

PATIENT
  Age: 57 Year
  Sex: Female

DRUGS (8)
  1. BOSULIF [Suspect]
     Active Substance: BOSUTINIB MONOHYDRATE
     Dosage: 500 MG, DAILY
     Route: 048
     Dates: start: 20230531
  2. MIRALAX [Concomitant]
     Active Substance: POLYETHYLENE GLYCOL 3350
     Dosage: 17 MG
  3. ALLOPURINOL [Concomitant]
     Active Substance: ALLOPURINOL
     Dosage: 300 MG
  4. ATIVAN [Concomitant]
     Active Substance: LORAZEPAM
     Dosage: 0.5 MG
  5. MAGNESIUM [Concomitant]
     Active Substance: MAGNESIUM
     Dosage: 250 MG
  6. OCREVUS [Concomitant]
     Active Substance: OCRELIZUMAB
     Dosage: 30 MG/ML
  7. SYNTHROID [Concomitant]
     Active Substance: LEVOTHYROXINE SODIUM
     Dosage: 88 UG
  8. VITAMIN D NOS [Concomitant]
     Active Substance: VITAMIN D NOS
     Dosage: 50 UG

REACTIONS (1)
  - Constipation [Recovering/Resolving]

NARRATIVE: CASE EVENT DATE: 20230601
